FAERS Safety Report 25603375 (Version 2)
Quarter: 2025Q3

REPORT INFORMATION
  Report Type: Spontaneous
  Country: US (occurrence: US)
  Receive Date: 20250724
  Receipt Date: 20250915
  Transmission Date: 20251020
  Serious: Yes (Hospitalization)
  Sender: ORIENT PHARMA
  Company Number: US-Orient Pharma-000367

PATIENT
  Age: 76 Year
  Sex: Female

DRUGS (1)
  1. PITAVASTATIN [Suspect]
     Active Substance: PITAVASTATIN
     Indication: Product used for unknown indication
     Route: 048

REACTIONS (3)
  - Product colour issue [Unknown]
  - Pain [Not Recovered/Not Resolved]
  - Cerebrovascular accident [Unknown]

NARRATIVE: CASE EVENT DATE: 20250423
